FAERS Safety Report 8128502-5 (Version None)
Quarter: 2011Q4

REPORT INFORMATION
  Report Type: 
  Country: None (occurrence: None)
  Receive Date: 20111227
  Receipt Date: 20111221
  Transmission Date: 20120403
  Serious: No
  Sender: FDA-Public Use
  Company Number: PHEH2011US07549

PATIENT
  Sex: Female
  Weight: 84.8 kg

DRUGS (4)
  1. GILENYA [Suspect]
     Dosage: 0.5MG, QD, ORAL
     Route: 048
     Dates: start: 20110503
  2. IMITEX (SUMATRIPTAN SUCCINATE) [Concomitant]
  3. VASOTEC [Concomitant]
  4. VITAMIN D [Concomitant]

REACTIONS (4)
  - WEIGHT INCREASED [None]
  - OEDEMA PERIPHERAL [None]
  - SWELLING FACE [None]
  - ABDOMINAL DISTENSION [None]
